FAERS Safety Report 5917596-0 (Version None)
Quarter: 2008Q4

REPORT INFORMATION
  Report Type: 
  Country: None (occurrence: None)
  Receive Date: 20081010
  Receipt Date: 20081010
  Transmission Date: 20090506
  Serious: Yes (Hospitalization)
  Sender: FDA-Public Use
  Company Number: None

PATIENT
  Sex: Female
  Weight: 73.6 kg

DRUGS (16)
  1. TAXOL [Suspect]
     Dosage: 250 MG
     Dates: end: 20080827
  2. ACTONEL [Concomitant]
  3. AMBIEN [Concomitant]
  4. ASPIRIN [Concomitant]
  5. ATENOLOL [Concomitant]
  6. CELEXA [Concomitant]
  7. GABAPENTIN [Concomitant]
  8. HYZAAR [Concomitant]
  9. IRON [Concomitant]
  10. LIPITOR [Concomitant]
  11. MAXALT [Concomitant]
  12. OMEPRAZOLE [Concomitant]
  13. PRILOSEC [Concomitant]
  14. RANITIDINE [Concomitant]
  15. ULTRAM [Concomitant]
  16. VICODIN [Concomitant]

REACTIONS (3)
  - ARTHRALGIA [None]
  - BONE PAIN [None]
  - NEUROPATHY PERIPHERAL [None]
